FAERS Safety Report 23683087 (Version 1)
Quarter: 2024Q1

REPORT INFORMATION
  Report Type: Spontaneous
  Country: US (occurrence: None)
  Receive Date: 20240327
  Receipt Date: 20240327
  Transmission Date: 20240409
  Serious: Yes (Other)
  Sender: FDA-Public Use
  Company Number: None

PATIENT
  Age: 75 Year
  Sex: Female
  Weight: 63.5 kg

DRUGS (2)
  1. ILUMYA [Suspect]
     Active Substance: TILDRAKIZUMAB-ASMN
     Indication: Psoriasis
     Dates: start: 20231102, end: 20231213
  2. TILDRAKIZUMAB [Concomitant]
     Active Substance: TILDRAKIZUMAB
     Dates: start: 20231102, end: 20231213

REACTIONS (4)
  - Skin ulcer [None]
  - Injection site haemorrhage [None]
  - Secretion discharge [None]
  - Skin weeping [None]

NARRATIVE: CASE EVENT DATE: 20240103
